FAERS Safety Report 5890137-2 (Version None)
Quarter: 2008Q3

REPORT INFORMATION
  Report Type: 
  Country: None (occurrence: None)
  Receive Date: 20080919
  Receipt Date: 20080908
  Transmission Date: 20090109
  Serious: Yes (Hospitalization, Other)
  Sender: FDA-Public Use
  Company Number: JP-PFIZER INC-2008066840

PATIENT
  Sex: Male
  Weight: 55 kg

DRUGS (2)
  1. CHANTIX [Suspect]
     Indication: SMOKING CESSATION THERAPY
     Route: 048
     Dates: start: 20080715, end: 20080722
  2. VOLTAREN [Concomitant]
     Route: 054
     Dates: start: 20080722

REACTIONS (1)
  - LIVER DISORDER [None]
